FAERS Safety Report 4577818-8 (Version None)
Quarter: 2005Q1

REPORT INFORMATION
  Report Type: 
  Country: None (occurrence: None)
  Receive Date: 20050209
  Receipt Date: 20050125
  Transmission Date: 20050727
  Serious: No
  Sender: FDA-Public Use
  Company Number: B0369183A

PATIENT
  Age: 37 Year
  Sex: Female

DRUGS (2)
  1. ZOFRAN [Suspect]
     Indication: NAUSEA
     Dosage: 4 MG/ UNKNOWN/ INTRAVENOUS
     Route: 042
  2. METOCLOPRAMIDE [Concomitant]

REACTIONS (9)
  - CONFUSIONAL STATE [None]
  - DYSKINESIA [None]
  - DYSTONIA [None]
  - ENCEPHALOPATHY [None]
  - GRIMACING [None]
  - HAEMATOCRIT DECREASED [None]
  - PERITONEAL HAEMORRHAGE [None]
  - SACCADIC EYE MOVEMENT [None]
  - TONIC CLONIC MOVEMENTS [None]
